FAERS Safety Report 20864022 (Version 1)
Quarter: 2022Q2

REPORT INFORMATION
  Report Type: Spontaneous
  Country: TR (occurrence: TR)
  Receive Date: 20220523
  Receipt Date: 20220523
  Transmission Date: 20220721
  Serious: Yes (Other)
  Sender: FDA-Public Use
  Company Number: TR-NOVARTISPH-NVSC2022TR117886

PATIENT
  Age: 44 Year
  Sex: Female

DRUGS (4)
  1. CYCLOSPORINE [Suspect]
     Active Substance: CYCLOSPORINE
     Indication: Vogt-Koyanagi-Harada disease
     Dosage: 200 MG, QD
     Route: 048
  2. METHYLPREDNISOLONE SODIUM SUCCINATE [Suspect]
     Active Substance: METHYLPREDNISOLONE SODIUM SUCCINATE
     Indication: Vogt-Koyanagi-Harada disease
     Dosage: 250 MG, QID
     Route: 042
  3. PREDNISOLONE [Suspect]
     Active Substance: PREDNISOLONE
     Indication: Vogt-Koyanagi-Harada disease
     Dosage: 60 MG, QD
     Route: 048
  4. PREDNISOLONE [Suspect]
     Active Substance: PREDNISOLONE
     Dosage: 10 MG, QW
     Route: 048

REACTIONS (3)
  - Vogt-Koyanagi-Harada disease [Unknown]
  - Disease progression [Unknown]
  - Product use in unapproved indication [Unknown]
